FAERS Safety Report 9836469 (Version 1)
Quarter: 2014Q1

REPORT INFORMATION
  Report Type: Report from Study
  Country: CA (occurrence: CA)
  Receive Date: 20140123
  Receipt Date: 20140123
  Transmission Date: 20141002
  Serious: Yes (Other)
  Sender: FDA-Public Use
  Company Number: CA-ROCHE-1333671

PATIENT
  Sex: Male
  Weight: 83.9 kg

DRUGS (9)
  1. RITUXAN [Suspect]
     Indication: WALDENSTROM^S MACROGLOBULINAEMIA
     Route: 042
  2. RITUXAN [Suspect]
     Dosage: 1ST RPAP DOSE,  MOST RECENT DOSE ON 15/OCT/2013.
     Route: 042
     Dates: start: 20120214
  3. DIPHENHYDRAMINE HCL [Concomitant]
     Indication: PREMEDICATION
     Route: 042
  4. ACETAMINOPHEN [Concomitant]
     Indication: PREMEDICATION
     Route: 048
  5. VALTREX [Concomitant]
  6. ZOLOFT [Concomitant]
  7. XANAX [Concomitant]
  8. NORVASC [Concomitant]
  9. IMMUNOGLOBULIN [Concomitant]
     Route: 042

REACTIONS (5)
  - Prostatomegaly [Not Recovered/Not Resolved]
  - Hypersensitivity [Recovered/Resolved]
  - No therapeutic response [Unknown]
  - Fatigue [Recovered/Resolved]
  - Off label use [Unknown]
